FAERS Safety Report 10882452 (Version 1)
Quarter: 2015Q1

REPORT INFORMATION
  Report Type: Spontaneous
  Country: US (occurrence: US)
  Receive Date: 20150303
  Receipt Date: 20150303
  Transmission Date: 20150721
  Serious: Yes (Hospitalization, Other)
  Sender: FDA-Public Use
  Company Number: US-ELI_LILLY_AND_COMPANY-US201502009489

PATIENT
  Age: 49 Year
  Sex: Female
  Weight: 76.64 kg

DRUGS (1)
  1. HUMALOG [Suspect]
     Active Substance: INSULIN LISPRO
     Indication: PRODUCT USED FOR UNKNOWN INDICATION
     Dosage: UNK
     Route: 058

REACTIONS (6)
  - Incoherent [Unknown]
  - Tremor [Unknown]
  - Nervous system disorder [Unknown]
  - Hyperglycaemic seizure [Unknown]
  - Enzyme abnormality [Unknown]
  - Hypoglycaemic unconsciousness [Not Recovered/Not Resolved]

NARRATIVE: CASE EVENT DATE: 20150220
